FAERS Safety Report 17214680 (Version 3)
Quarter: 2020Q2

REPORT INFORMATION
  Report Type: Report from Study
  Country: US (occurrence: US)
  Receive Date: 20191230
  Receipt Date: 20200430
  Transmission Date: 20200713
  Serious: No
  Sender: FDA-Public Use
  Company Number: NVSC2019US081984

PATIENT
  Sex: Male

DRUGS (2)
  1. COSENTYX [Suspect]
     Active Substance: SECUKINUMAB
     Indication: PSORIASIS
     Dosage: 150 MG, QMO
     Route: 058
     Dates: start: 201911
  2. COSENTYX [Suspect]
     Active Substance: SECUKINUMAB
     Indication: PSORIATIC ARTHROPATHY
     Dosage: 150 MG, QW2
     Route: 058

REACTIONS (6)
  - Skin exfoliation [Unknown]
  - Injection site pain [Unknown]
  - Drug ineffective [Unknown]
  - Product dose omission [Unknown]
  - Bone pain [Unknown]
  - Psoriasis [Recovering/Resolving]
